FAERS Safety Report 18723657 (Version 1)
Quarter: 2021Q1

REPORT INFORMATION
  Report Type: Report from Study
  Country: None (occurrence: FR)
  Receive Date: 20210111
  Receipt Date: 20210111
  Transmission Date: 20210419
  Serious: Yes (Other)
  Sender: FDA-Public Use
  Company Number: FR-ABBVIE-20K-056-3699777-00

PATIENT
  Age: 45 Year
  Sex: Female

DRUGS (2)
  1. HUMIRA [Suspect]
     Active Substance: ADALIMUMAB
     Indication: COLITIS ULCERATIVE
     Dosage: WEEK ONE
     Route: 058
     Dates: start: 20201016, end: 20201016
  2. HUMIRA [Suspect]
     Active Substance: ADALIMUMAB
     Dosage: WEEK 2
     Route: 058
     Dates: start: 202010

REACTIONS (9)
  - Anaemia [Unknown]
  - Constipation [Unknown]
  - Visual impairment [Unknown]
  - Back pain [Not Recovered/Not Resolved]
  - Road traffic accident [Unknown]
  - Rectal haemorrhage [Unknown]
  - Presyncope [Unknown]
  - Haematoma [Recovered/Resolved]
  - Folate deficiency [Unknown]

NARRATIVE: CASE EVENT DATE: 2020
